FAERS Safety Report 13710832 (Version 1)
Quarter: 2017Q3

REPORT INFORMATION
  Report Type: Spontaneous
  Country: US (occurrence: US)
  Receive Date: 20170701
  Receipt Date: 20170701
  Transmission Date: 20171127
  Serious: Yes (Hospitalization)
  Sender: FDA-Public Use
  Company Number: None

PATIENT
  Age: 41 Year
  Sex: Male
  Weight: 94 kg

DRUGS (1)
  1. CISPLATIN. [Suspect]
     Active Substance: CISPLATIN
     Dates: end: 20170606

REACTIONS (7)
  - Cellulitis [None]
  - Incision site cellulitis [None]
  - Cellulitis staphylococcal [None]
  - Wound infection [None]
  - Abscess [None]
  - Blood creatinine increased [None]
  - Abdominal wall abscess [None]

NARRATIVE: CASE EVENT DATE: 20170609
